FAERS Safety Report 18162875 (Version 2)
Quarter: 2023Q2

REPORT INFORMATION
  Report Type: Spontaneous
  Country: US (occurrence: US)
  Receive Date: 20200818
  Receipt Date: 20230629
  Transmission Date: 20230721
  Serious: No
  Sender: FDA-Public Use
  Company Number: US-AMGEN-USASP2020131320

PATIENT
  Age: 71 Year
  Sex: Female

DRUGS (1)
  1. REPATHA [Suspect]
     Active Substance: EVOLOCUMAB
     Indication: Hypercholesterolaemia
     Dosage: 140 MILLIGRAM
     Route: 065

REACTIONS (3)
  - Blood glucose decreased [Unknown]
  - Wrong technique in product usage process [Unknown]
  - Device difficult to use [Unknown]

NARRATIVE: CASE EVENT DATE: 20200809
